FAERS Safety Report 12558012 (Version 2)
Quarter: 2021Q1

REPORT INFORMATION
  Report Type: Spontaneous
  Country: US (occurrence: US)
  Receive Date: 20160714
  Receipt Date: 20210223
  Transmission Date: 20210419
  Serious: Yes (Other)
  Sender: FDA-Public Use
  Company Number: US-JAZZ-2016-US-000699

PATIENT
  Sex: Female

DRUGS (9)
  1. XYREM [Suspect]
     Active Substance: SODIUM OXYBATE
     Indication: CATAPLEXY
     Dosage: 2.25 GRAM, BID
     Route: 048
     Dates: start: 201101, end: 2011
  2. XYREM [Suspect]
     Active Substance: SODIUM OXYBATE
     Dosage: DOSE ADJUSTMENT
     Route: 048
  3. XYREM [Suspect]
     Active Substance: SODIUM OXYBATE
     Dosage: 3 G, FIRST DOSE
     Route: 048
     Dates: start: 201407, end: 2015
  4. XYREM [Suspect]
     Active Substance: SODIUM OXYBATE
     Dosage: 1.5 GRAM, BID
     Route: 048
  5. XYREM [Suspect]
     Active Substance: SODIUM OXYBATE
     Indication: NARCOLEPSY
     Dosage: 2.25 GRAM, BID
     Route: 048
     Dates: start: 200905, end: 2009
  6. XYREM [Suspect]
     Active Substance: SODIUM OXYBATE
     Dosage: 3.75 G, SECOND DOSE
     Route: 048
     Dates: start: 201407, end: 2015
  7. XYREM [Suspect]
     Active Substance: SODIUM OXYBATE
     Dosage: 3 GRAM, SECOND DOSE
     Route: 048
  8. XYREM [Suspect]
     Active Substance: SODIUM OXYBATE
     Dosage: 1.5 GRAM, FIRST DOSE
     Route: 048
  9. XYREM [Suspect]
     Active Substance: SODIUM OXYBATE
     Dosage: 3 GRAM, BID
     Route: 048

REACTIONS (9)
  - Urinary incontinence [Not Recovered/Not Resolved]
  - Hallucination [Recovered/Resolved]
  - Nightmare [Recovered/Resolved]
  - Depression [Recovered/Resolved]
  - Intentional product misuse [Unknown]
  - Dry mouth [Unknown]
  - Suicide attempt [Recovered/Resolved]
  - Suicidal ideation [Recovered/Resolved]
  - Intentional product use issue [Unknown]
